FAERS Safety Report 16735419 (Version 1)
Quarter: 2019Q3

REPORT INFORMATION
  Report Type: Spontaneous
  Country: CA (occurrence: CA)
  Receive Date: 20190823
  Receipt Date: 20190823
  Transmission Date: 20191005
  Serious: Yes (Hospitalization, Other)
  Sender: FDA-Public Use
  Company Number: CA-SAMSUNG BIOEPIS-SB-2019-23686

PATIENT
  Age: 19 Year
  Sex: Male
  Weight: 80 kg

DRUGS (1)
  1. INFLIXIMAB [Suspect]
     Active Substance: INFLIXIMAB
     Indication: COLITIS ULCERATIVE
     Route: 042

REACTIONS (9)
  - Infectious mononucleosis [Recovered/Resolved]
  - Injection site pain [Recovered/Resolved]
  - Therapeutic product effect incomplete [Recovered/Resolved]
  - Tonsillitis [Recovered/Resolved]
  - Condition aggravated [Recovered/Resolved]
  - Streptococcal infection [Recovered/Resolved]
  - Weight decreased [Recovered/Resolved]
  - Product use issue [Recovered/Resolved]
  - Autoimmune hepatitis [Recovered/Resolved]
